FAERS Safety Report 14237567 (Version 2)
Quarter: 2024Q3

REPORT INFORMATION
  Report Type: Spontaneous
  Country: TW (occurrence: TW)
  Receive Date: 20171129
  Receipt Date: 20240821
  Transmission Date: 20241016
  Serious: Yes (Other)
  Sender: SANOFI AVENTIS
  Company Number: TW-SA-2017SA224217

PATIENT
  Age: 50 Year
  Sex: Female

DRUGS (4)
  1. DOCETAXEL [Suspect]
     Active Substance: DOCETAXEL\DOCETAXEL ANHYDROUS
     Indication: Breast cancer stage IV
     Dosage: UNK
     Dates: start: 20120619, end: 20120619
  2. DESMOPRESSIN ACETATE [Suspect]
     Active Substance: DESMOPRESSIN ACETATE
     Indication: Diabetes insipidus
     Dosage: 20 UG, BID
     Dates: start: 2012
  3. DESMOPRESSIN ACETATE [Suspect]
     Active Substance: DESMOPRESSIN ACETATE
     Dosage: UNK
  4. EPIRUBICIN [Suspect]
     Active Substance: EPIRUBICIN
     Indication: Breast cancer stage IV
     Dosage: UNK
     Route: 065
     Dates: start: 20120619, end: 20120619

REACTIONS (4)
  - Febrile neutropenia [Unknown]
  - Diabetes insipidus [Unknown]
  - Rebound effect [Unknown]
  - Polyuria [Unknown]

NARRATIVE: CASE EVENT DATE: 20120101
